FAERS Safety Report 20934385 (Version 1)
Quarter: 2022Q2

REPORT INFORMATION
  Report Type: Spontaneous
  Country: US (occurrence: None)
  Receive Date: 20220607
  Receipt Date: 20220607
  Transmission Date: 20220721
  Serious: Yes (Hospitalization)
  Sender: FDA-Public Use
  Company Number: None

PATIENT
  Age: 19 Year
  Sex: Female

DRUGS (21)
  1. BENLYSTA [Suspect]
     Active Substance: BELIMUMAB
     Dosage: FREQUENCY : WEEKLY;?
     Route: 058
     Dates: start: 20220223
  2. ALBUTEROL AER HFA [Concomitant]
  3. ARNUITY ELPT INH 100MCG [Concomitant]
  4. AZITHROMYCIN [Concomitant]
     Active Substance: AZITHROMYCIN
  5. BENLYSTA INJ 200MG/ML [Concomitant]
  6. CLONIDINE DIS 0.1/24HR [Concomitant]
  7. DULOXETINE CAP 30MG [Concomitant]
  8. DULOXETINE CAP 60MG [Concomitant]
  9. GABAPENTIN CAP 100MG [Concomitant]
  10. HYDROXYCHLOROQUINE [Concomitant]
     Active Substance: HYDROXYCHLOROQUINE
  11. HYDROXYZ HCL TAB 25MG [Concomitant]
  12. LAMOTRIGINE [Concomitant]
     Active Substance: LAMOTRIGINE
  13. LINZESS CAP 72MCG [Concomitant]
  14. LORAZEPAM TAB 0.5MG [Concomitant]
  15. MIDODRINE TAB 2.5MG [Concomitant]
  16. OMEPRAZOLE TAB 20MG [Concomitant]
  17. ONDANSETRON [Concomitant]
     Active Substance: ONDANSETRON
  18. PROMETHAZINE TAB 12.5MG [Concomitant]
  19. PROPRANOLOL CAP 60MG ER [Concomitant]
  20. PROPRANOLOL TAB 10MG [Concomitant]
  21. TRULANCE TAB 3MG [Concomitant]

REACTIONS (2)
  - Infection [None]
  - Illness [None]

NARRATIVE: CASE EVENT DATE: 20220607
